FAERS Safety Report 9334312 (Version 1)
Quarter: 2013Q2

REPORT INFORMATION
  Report Type: Spontaneous
  Country: US (occurrence: US)
  Receive Date: 20130606
  Receipt Date: 20130606
  Transmission Date: 20140414
  Serious: No
  Sender: FDA-Public Use
  Company Number: US-AMGEN-USASP2013032485

PATIENT
  Age: 81 Year
  Sex: Female
  Weight: 75.28 kg

DRUGS (6)
  1. PROLIA [Suspect]
     Indication: OSTEOPOROSIS POSTMENOPAUSAL
     Dosage: UNK
     Dates: start: 20121024
  2. LOVASTATIN [Concomitant]
     Indication: BLOOD CHOLESTEROL
     Dosage: 20 MG, QD
     Route: 048
  3. PRILOSEC                           /00661201/ [Concomitant]
     Indication: ANTACID THERAPY
     Dosage: 20 MG, QD
     Route: 048
  4. ALLEGRA 24 HOUR [Concomitant]
     Indication: HYPERSENSITIVITY
     Dosage: UNK UNK, QD
     Route: 048
  5. MIRALAX                            /00754501/ [Concomitant]
     Indication: CONSTIPATION
     Dosage: POST MEAL
     Route: 048
  6. ASA [Concomitant]
     Dosage: 81 MG, QD
     Route: 048

REACTIONS (4)
  - Mobility decreased [Unknown]
  - Osteoarthritis [Unknown]
  - Back pain [Unknown]
  - Pain in extremity [Unknown]
